FAERS Safety Report 4293149-8 (Version None)
Quarter: 2004Q1

REPORT INFORMATION
  Report Type: 
  Country: None (occurrence: None)
  Receive Date: 20040212
  Receipt Date: 20030613
  Transmission Date: 20041129
  Serious: No
  Sender: FDA-Public Use
  Company Number: US-GLAXOSMITHKLINE-A0412290A

PATIENT
  Age: 74 Year
  Sex: Female

DRUGS (11)
  1. PAXIL [Suspect]
     Indication: ANXIETY
     Dates: start: 20020601, end: 20030612
  2. PAXIL CR [Suspect]
     Indication: ANXIETY
     Dosage: 25MG PER DAY
     Route: 048
     Dates: start: 20030613
  3. ZANTAC 75 [Concomitant]
     Dates: start: 20030612
  4. ZOCOR [Concomitant]
  5. LISINOPRIL [Concomitant]
  6. HYDROCHLOROTHIAZIDE [Concomitant]
  7. ADVAIR DISKUS 100/50 [Concomitant]
  8. ALBUTEROL [Concomitant]
  9. ZESTRIL [Concomitant]
  10. DETROL LA [Concomitant]
  11. MYCELEX [Concomitant]

REACTIONS (3)
  - INSOMNIA [None]
  - NAUSEA [None]
  - SOMNOLENCE [None]
